FAERS Safety Report 6306124-6 (Version None)
Quarter: 2009Q3

REPORT INFORMATION
  Report Type: 
  Country: None (occurrence: None)
  Receive Date: 20090810
  Receipt Date: 20090810
  Transmission Date: 20100115
  Serious: No
  Sender: FDA-Public Use
  Company Number: None

PATIENT
  Age: 60 Year
  Sex: Female

DRUGS (2)
  1. ALENDRONATE SODIUM [Suspect]
     Dosage: FIRST USE EVERY OTHER MONTH ORALLY
     Route: 048
     Dates: start: 20090704, end: 20090704
  2. ADVIL [Concomitant]

REACTIONS (5)
  - BACK PAIN [None]
  - DYSPNOEA [None]
  - FATIGUE [None]
  - MUSCLE ATROPHY [None]
  - MUSCLE SPASMS [None]
